FAERS Safety Report 16472449 (Version 2)
Quarter: 2019Q2

REPORT INFORMATION
  Report Type: Spontaneous
  Country: JP (occurrence: JP)
  Receive Date: 20190625
  Receipt Date: 20190625
  Transmission Date: 20190711
  Serious: Yes (Other)
  Sender: FDA-Public Use
  Company Number: JP-MACLEODS PHARMACEUTICALS US LTD-MAC2019021370

PATIENT

DRUGS (2)
  1. ADEFOVIR [Suspect]
     Active Substance: ADEFOVIR
     Indication: CHRONIC HEPATITIS B
     Dosage: 10 MILLIGRAM, QD FOR 6 YEARS
     Route: 065
  2. LAMIVUDINE. [Suspect]
     Active Substance: LAMIVUDINE
     Indication: CHRONIC HEPATITIS B
     Dosage: 100 MILLIGRAM, QD FOR 10 YEARS
     Route: 065

REACTIONS (2)
  - Myopathy toxic [Unknown]
  - Acquired mitochondrial DNA deletion [Unknown]
